FAERS Safety Report 9014639 (Version 2)
Quarter: 2013Q1

REPORT INFORMATION
  Report Type: Spontaneous
  Country: US (occurrence: US)
  Receive Date: 20130115
  Receipt Date: 20130226
  Transmission Date: 20140127
  Serious: Yes (Other)
  Sender: FDA-Public Use
  Company Number: US-JNJFOC-20130102561

PATIENT
  Age: 28 Year
  Sex: Male
  Weight: 86.18 kg

DRUGS (8)
  1. REMICADE [Suspect]
     Indication: CROHN^S DISEASE
     Dosage: 5 MG/KG
     Route: 042
     Dates: start: 20130103, end: 20130103
  2. REMICADE [Suspect]
     Indication: CROHN^S DISEASE
     Route: 042
  3. APAP [Concomitant]
     Indication: PREMEDICATION
     Dosage: 1 HOUR PRIOR TO INFUSION
     Route: 065
     Dates: start: 20130103
  4. CLARITIN [Concomitant]
     Indication: PREMEDICATION
     Dosage: 1 HOUR PRIOR TO INFUSION
     Route: 065
     Dates: start: 20130103
  5. STEROIDS NOS [Concomitant]
     Indication: PREMEDICATION
     Dosage: 24 HOURS PRIOR TO INFUSION
     Route: 048
  6. PREDNISONE [Concomitant]
     Indication: PREMEDICATION
     Route: 065
     Dates: start: 20130102, end: 20130103
  7. SOLU MEDROL [Concomitant]
     Indication: PREMEDICATION
     Route: 065
     Dates: start: 20130103
  8. PEPCID AC [Concomitant]
     Indication: PREMEDICATION
     Route: 065
     Dates: start: 20130103

REACTIONS (2)
  - Throat tightness [Unknown]
  - Infusion related reaction [Unknown]
